FAERS Safety Report 8001548-3 (Version None)
Quarter: 2011Q4

REPORT INFORMATION
  Report Type: 
  Country: None (occurrence: None)
  Receive Date: 20111222
  Receipt Date: 20111216
  Transmission Date: 20120403
  Serious: Yes (Life-Threatening, Hospitalization, Disabling)
  Sender: FDA-Public Use
  Company Number: DE-PFIZER INC-2011306105

PATIENT
  Age: 72 Year
  Sex: Female
  Weight: 66.6 kg

DRUGS (1)
  1. SUTENT [Suspect]
     Indication: METASTATIC RENAL CELL CARCINOMA
     Dosage: 50 MG, 1X/DAY
     Route: 048
     Dates: start: 20110506, end: 20110520

REACTIONS (5)
  - DYSPNOEA AT REST [None]
  - HYPOTENSION [None]
  - OEDEMA PERIPHERAL [None]
  - GENERALISED OEDEMA [None]
  - CARDIAC FAILURE [None]
